FAERS Safety Report 8071169-5 (Version None)
Quarter: 2012Q1

REPORT INFORMATION
  Report Type: 
  Country: None (occurrence: None)
  Receive Date: 20120125
  Receipt Date: 20120116
  Transmission Date: 20120608
  Serious: Yes (Other)
  Sender: FDA-Public Use
  Company Number: PHHY2012CN005560

PATIENT
  Age: 20 Year
  Sex: Male

DRUGS (11)
  1. ANTI-THYMOCYTE GLOBULIN RABBIT NOS [Concomitant]
     Dosage: 30 MG/KG, UNK
  2. ITRACONAZOLE [Concomitant]
     Route: 048
  3. FLUDARABINE [Concomitant]
     Dosage: 120 MG/M2, UNK
  4. FILGRASTIM [Concomitant]
     Dosage: 5 MG/KG, DAY
     Route: 042
  5. CYCLOPHOSPHAMIDE [Concomitant]
     Dosage: 1200 MG/M2, UNK
  6. MYCOPHENOLATE MOFETIL [Concomitant]
     Dosage: 25 MG/KG, DAY
     Route: 048
  7. RED BLOOD CELLS [Concomitant]
  8. CYCLOSPORINE [Suspect]
     Indication: STEM CELL TRANSPLANT
     Dosage: 3 MG/KG, DAY
     Route: 042
  9. PLATELETS [Concomitant]
  10. THYROID PEROXIDASE [Concomitant]
     Dosage: 150 U/ KG/ DAY
     Route: 058
  11. ACYCLOVIR [Concomitant]
     Route: 042

REACTIONS (2)
  - FEBRILE NEUTROPENIA [None]
  - TRANSPLANT REJECTION [None]
